FAERS Safety Report 8398388 (Version 3)
Quarter: 2013Q1

REPORT INFORMATION
  Report Type: Spontaneous
  Country: NO (occurrence: NO)
  Receive Date: 20120209
  Receipt Date: 20130313
  Transmission Date: 20140127
  Serious: Yes (Hospitalization)
  Sender: FDA-Public Use
  Company Number: NO-ABBOTT-12P-122-0899788-00

PATIENT
  Sex: Female

DRUGS (6)
  1. CLARITHROMYCIN [Suspect]
     Indication: HELICOBACTER INFECTION
     Route: 048
     Dates: start: 201105, end: 20110529
  2. METRONIDAZOLE [Suspect]
     Indication: HELICOBACTER INFECTION
     Dates: start: 201105, end: 20110529
  3. COSOPT [Concomitant]
     Indication: GLAUCOMA
     Route: 047
  4. LEVAXIN [Concomitant]
     Indication: HYPOTHYROIDISM
     Route: 048
  5. XALATAN [Concomitant]
     Indication: GLAUCOMA
  6. LANSOPRAZOLE [Concomitant]
     Indication: HELICOBACTER INFECTION
     Route: 048
     Dates: start: 201105, end: 20110527

REACTIONS (2)
  - Delusion [Recovering/Resolving]
  - Hallucination, visual [Recovering/Resolving]
